FAERS Safety Report 12609512 (Version 1)
Quarter: 2016Q3

REPORT INFORMATION
  Report Type: Spontaneous
  Country: US (occurrence: None)
  Receive Date: 20160729
  Receipt Date: 20160729
  Transmission Date: 20161109
  Serious: No
  Sender: FDA-Public Use
  Company Number: None

PATIENT
  Age: 30 Year
  Sex: Male

DRUGS (1)
  1. HALOPERIDOL 5MG/ML MYLAN [Suspect]
     Active Substance: HALOPERIDOL
     Dosage: 2ML (10MG) Q6H PRN IM
     Route: 030
     Dates: start: 20160704

REACTIONS (3)
  - Cogwheel rigidity [None]
  - Gait disturbance [None]
  - Torticollis [None]

NARRATIVE: CASE EVENT DATE: 20160705
